FAERS Safety Report 6343640-5 (Version None)
Quarter: 2009Q3

REPORT INFORMATION
  Report Type: 
  Country: None (occurrence: None)
  Receive Date: 20090908
  Receipt Date: 20090831
  Transmission Date: 20100115
  Serious: Yes (Hospitalization)
  Sender: FDA-Public Use
  Company Number: FR-ASTRAZENECA-2009SE10979

PATIENT
  Age: 24703 Day
  Sex: Male

DRUGS (9)
  1. INEXIUM [Suspect]
     Route: 042
     Dates: start: 20090625, end: 20090628
  2. CISPLATIN [Suspect]
     Indication: LARYNGEAL CANCER STAGE 0
     Route: 042
     Dates: start: 20090519, end: 20090616
  3. DEXAMETHASONE [Concomitant]
     Route: 042
     Dates: start: 20090519, end: 20090616
  4. ONDANSETRON [Concomitant]
     Route: 048
     Dates: start: 20090519, end: 20090616
  5. CEFTRIAXONE [Concomitant]
     Route: 042
     Dates: start: 20090625, end: 20090701
  6. METRONIDAZOLE [Concomitant]
     Indication: ABDOMINAL SEPSIS
     Route: 042
     Dates: start: 20090625, end: 20090701
  7. BRICANYL [Concomitant]
     Indication: CHRONIC OBSTRUCTIVE PULMONARY DISEASE
     Route: 055
     Dates: start: 20090401
  8. ATROVENT [Concomitant]
     Indication: CHRONIC OBSTRUCTIVE PULMONARY DISEASE
     Route: 055
     Dates: start: 20090201
  9. XANAX [Concomitant]
     Indication: ANXIETY
     Route: 048
     Dates: start: 20090401

REACTIONS (2)
  - ANAEMIA [None]
  - NEUTROPENIA [None]
